FAERS Safety Report 22284549 (Version 1)
Quarter: 2023Q2

REPORT INFORMATION
  Report Type: Spontaneous
  Country: CN (occurrence: CN)
  Receive Date: 20230504
  Receipt Date: 20230504
  Transmission Date: 20230722
  Serious: Yes (Life-Threatening, Hospitalization)
  Sender: FDA-Public Use
  Company Number: CN-PFIZER INC-PV202300077945

PATIENT
  Age: 58 Year
  Sex: Male
  Weight: 58 kg

DRUGS (6)
  1. VORICONAZOLE [Suspect]
     Active Substance: VORICONAZOLE
     Indication: Infection
     Dosage: 200 MG, 2X/DAY
     Route: 048
     Dates: start: 20230420, end: 20230421
  2. VORICONAZOLE [Suspect]
     Active Substance: VORICONAZOLE
     Indication: Bronchopulmonary aspergillosis
     Dosage: 100 MG, 2X/DAY
     Route: 048
     Dates: start: 20230422, end: 20230423
  3. VORICONAZOLE [Suspect]
     Active Substance: VORICONAZOLE
     Indication: Infection
     Dosage: 200 MG, 2X/DAY
     Route: 041
     Dates: start: 20230328, end: 20230419
  4. VORICONAZOLE [Suspect]
     Active Substance: VORICONAZOLE
     Indication: Bronchopulmonary aspergillosis
  5. VORICONAZOLE [Suspect]
     Active Substance: VORICONAZOLE
     Indication: Infection
     Dosage: 400 MG, 2X/DAY
     Route: 048
     Dates: start: 20230325, end: 20230325
  6. VORICONAZOLE [Suspect]
     Active Substance: VORICONAZOLE
     Indication: Bronchopulmonary aspergillosis
     Dosage: 200 MG, 2X/DAY
     Route: 048
     Dates: start: 20230326, end: 20230327

REACTIONS (4)
  - Blood potassium decreased [Recovered/Resolved]
  - Platelet count decreased [Not Recovered/Not Resolved]
  - Liver injury [Recovering/Resolving]
  - Blood creatinine increased [Recovered/Resolved]

NARRATIVE: CASE EVENT DATE: 20230421
